FAERS Safety Report 22027306 (Version 3)
Quarter: 2023Q2

REPORT INFORMATION
  Report Type: Spontaneous
  Country: US (occurrence: US)
  Receive Date: 20230223
  Receipt Date: 20230406
  Transmission Date: 20230721
  Serious: Yes (Other)
  Sender: FDA-Public Use
  Company Number: US-BAYER-2023A019586

PATIENT
  Age: 32 Year
  Sex: Male

DRUGS (5)
  1. KOVALTRY [Suspect]
     Active Substance: ANTIHEMOPHILIC FACTOR, HUMAN RECOMBINANT
     Dosage: 3000 IU
  2. KOVALTRY [Suspect]
     Active Substance: ANTIHEMOPHILIC FACTOR, HUMAN RECOMBINANT
     Dosage: 1 DF, FOR THE LEFT ANKLE BLEED TREATMENT
     Dates: start: 20230214, end: 20230214
  3. KOVALTRY [Suspect]
     Active Substance: ANTIHEMOPHILIC FACTOR, HUMAN RECOMBINANT
     Dosage: 1 DF, FOR THE LEFT ANKLE BLEED TREATMENT
     Dates: start: 20230215, end: 20230215
  4. KOVALTRY [Suspect]
     Active Substance: ANTIHEMOPHILIC FACTOR, HUMAN RECOMBINANT
     Dosage: 3000/6000 UNITS
  5. KOVALTRY [Suspect]
     Active Substance: ANTIHEMOPHILIC FACTOR, HUMAN RECOMBINANT
     Dosage: USED A COUPLE OF DOSES FOR THE LEFT ANKLE BLEED TREATMENT

REACTIONS (5)
  - Ankle fracture [None]
  - Traumatic haemorrhage [Not Recovered/Not Resolved]
  - Traumatic haemorrhage [Recovered/Resolved]
  - Joint injury [None]
  - Joint injury [None]

NARRATIVE: CASE EVENT DATE: 20230214
